FAERS Safety Report 21741657 (Version 1)
Quarter: 2022Q4

REPORT INFORMATION
  Report Type: Spontaneous
  Country: US (occurrence: US)
  Receive Date: 20221216
  Receipt Date: 20221216
  Transmission Date: 20230113
  Serious: No
  Sender: FDA-Public Use
  Company Number: US-MYLANLABS-2022M1138741

PATIENT
  Age: 64 Year
  Sex: Female
  Weight: 70.31 kg

DRUGS (4)
  1. ATORVASTATIN [Suspect]
     Active Substance: ATORVASTATIN
     Indication: Blood cholesterol
     Dosage: UNK
     Route: 065
  2. PAXLOVID [Concomitant]
     Active Substance: NIRMATRELVIR\RITONAVIR
     Indication: COVID-19
     Dosage: UNK UNK, BID, 2 NIRMATRAVIR AND 1 RITONAVIR TWICE DAILY BY MOUTH
     Route: 048
     Dates: start: 20221128, end: 20221201
  3. DOXYLAMINE SUCCINATE [Concomitant]
     Active Substance: DOXYLAMINE SUCCINATE
     Indication: Cough
     Dosage: UNK (DOSE IS 2 CAPSULE BUT SHE ONLY TOOK1/2 DOSE OR 1 CAPSULE)
     Route: 065
  4. DOXYLAMINE SUCCINATE [Concomitant]
     Active Substance: DOXYLAMINE SUCCINATE
     Indication: Sleep disorder

REACTIONS (1)
  - Heart rate increased [Recovering/Resolving]

NARRATIVE: CASE EVENT DATE: 20221202
